FAERS Safety Report 13411061 (Version 2)
Quarter: 2017Q4

REPORT INFORMATION
  Report Type: Spontaneous
  Country: US (occurrence: US)
  Receive Date: 20170406
  Receipt Date: 20171123
  Transmission Date: 20180320
  Serious: No
  Sender: FDA-Public Use
  Company Number: US-JNJFOC-20170304257

PATIENT
  Age: 10 Year
  Sex: Male

DRUGS (3)
  1. ZOLOFT [Suspect]
     Active Substance: SERTRALINE HYDROCHLORIDE
     Indication: PRODUCT USED FOR UNKNOWN INDICATION
     Route: 065
  2. RISPERIDONE. [Suspect]
     Active Substance: RISPERIDONE
     Indication: PRODUCT USED FOR UNKNOWN INDICATION
     Route: 048
  3. RISPERDAL [Suspect]
     Active Substance: RISPERIDONE
     Indication: AFFECTIVE DISORDER
     Route: 048
     Dates: start: 20080310, end: 20101001

REACTIONS (3)
  - Gynaecomastia [Unknown]
  - Weight increased [Unknown]
  - Emotional disorder [Unknown]

NARRATIVE: CASE EVENT DATE: 20090624
